FAERS Safety Report 7313705-X (Version None)
Quarter: 2011Q1

REPORT INFORMATION
  Report Type: 
  Country: None (occurrence: None)
  Receive Date: 20110225
  Receipt Date: 20110214
  Transmission Date: 20110831
  Serious: Yes (Other)
  Sender: FDA-Public Use
  Company Number: GR-ELI_LILLY_AND_COMPANY-GR201102003455

PATIENT
  Age: 12 Year
  Sex: Male
  Weight: 95 kg

DRUGS (2)
  1. RISPERDAL [Concomitant]
     Indication: PSYCHOTIC DISORDER
     Dosage: 2 MG, DAILY (1/D)
     Route: 048
     Dates: start: 20090101
  2. LADOSE [Suspect]
     Indication: DEPRESSION
     Dosage: 20 MG, DAILY (1/D)
     Route: 048

REACTIONS (1)
  - WEIGHT INCREASED [None]
